FAERS Safety Report 24710547 (Version 1)
Quarter: 2024Q4

REPORT INFORMATION
  Report Type: Spontaneous
  Country: US (occurrence: US)
  Receive Date: 20241209
  Receipt Date: 20241209
  Transmission Date: 20250115
  Serious: Yes (Other)
  Sender: AMGEN
  Company Number: US-AMGEN-USASP2024240222

PATIENT
  Age: 68 Year
  Sex: Female

DRUGS (1)
  1. ERENUMAB [Suspect]
     Active Substance: ERENUMAB
     Indication: Migraine
     Dosage: UNK
     Route: 065

REACTIONS (4)
  - Foot deformity [Recovered/Resolved]
  - Wound dehiscence [Recovered/Resolved]
  - Foot fracture [Recovered/Resolved]
  - Impaired healing [Recovered/Resolved]
